FAERS Safety Report 17103081 (Version 2)
Quarter: 2019Q4

REPORT INFORMATION
  Report Type: Spontaneous
  Country: RU (occurrence: RU)
  Receive Date: 20191203
  Receipt Date: 20191203
  Transmission Date: 20200122
  Serious: Yes (Death, Other)
  Sender: FDA-Public Use
  Company Number: RU-009507513-1911RUS012246

PATIENT
  Age: 54 Year
  Sex: Male
  Weight: 83 kg

DRUGS (3)
  1. NOXAFIL [Suspect]
     Active Substance: POSACONAZOLE
     Indication: ANTIFUNGAL PROPHYLAXIS
     Dosage: DAILY DOSE OF 15 ML, SINGLE DOSE OF 600MG
     Route: 048
     Dates: start: 20190712, end: 20190720
  2. AVELOX [Suspect]
     Active Substance: MOXIFLOXACIN HYDROCHLORIDE
     Indication: BRONCHITIS CHRONIC
     Dosage: DAILY DOSE OF 400 MG, SINGLE DOSE OF 400 MG
     Route: 042
     Dates: start: 20190705, end: 20190717
  3. CILAPENEM [Suspect]
     Active Substance: CILASTATIN SODIUM\IMIPENEM
     Indication: PYREXIA
     Dosage: DAILY DOSE 4 G
     Route: 042
     Dates: start: 20190717, end: 20190722

REACTIONS (4)
  - Asthenia [Fatal]
  - Vomiting [Fatal]
  - Nausea [Fatal]
  - Respiratory failure [Fatal]

NARRATIVE: CASE EVENT DATE: 20190722
